FAERS Safety Report 9742151 (Version 1)
Quarter: 2013Q4

REPORT INFORMATION
  Report Type: Other
  Country: GB (occurrence: GB)
  Receive Date: 20131210
  Receipt Date: 20131210
  Transmission Date: 20140711
  Serious: Yes (Other)
  Sender: FDA-Public Use
  Company Number: GB-TARO PHARMACEUTICALS U.S.A., INC-2013SUN05133

PATIENT
  Age: 65 Year
  Sex: Male
  Weight: 112 kg

DRUGS (3)
  1. WARFARIN [Suspect]
     Indication: ANTICOAGULANT THERAPY
     Dosage: 6 MG, UNK
     Route: 048
     Dates: start: 20130804, end: 20131104
  2. CANDESARTAN [Concomitant]
  3. FLECAINIDE [Concomitant]

REACTIONS (4)
  - Arthralgia [Recovered/Resolved]
  - Myalgia [Recovered/Resolved]
  - Hypersomnia [Recovered/Resolved]
  - Fatigue [Recovered/Resolved]
